FAERS Safety Report 5087160-7 (Version None)
Quarter: 2006Q3

REPORT INFORMATION
  Report Type: 
  Country: None (occurrence: None)
  Receive Date: 20060821
  Receipt Date: 20060807
  Transmission Date: 20061208
  Serious: Yes (Hospitalization)
  Sender: FDA-Public Use
  Company Number: 2006096942

PATIENT
  Age: 46 Year
  Sex: Male
  Weight: 76.8393 kg

DRUGS (3)
  1. LYRICA [Suspect]
     Indication: PAIN
     Dosage: 300 MG (150 MG, 2 IN 1 D), ORAL
     Route: 048
     Dates: start: 20060331, end: 20060528
  2. LIBRIUM [Suspect]
     Indication: ANXIETY
     Dosage: 150 MG (50 MG,3 IN 1 D), ORAL
     Route: 048
     Dates: start: 20060501, end: 20060501
  3. ALL OTHER THERAPEUTIC PRODUCTS (ALL OTHER THERAPEUTIC PRODUCTS) [Suspect]
     Indication: INTESTINAL FUNCTIONAL DISORDER
     Dosage: 1 MG (0.5 MG, 2 IN 1 D), ORAL
     Route: 048
     Dates: start: 20051102

REACTIONS (4)
  - ANXIETY [None]
  - BALANCE DISORDER [None]
  - COORDINATION ABNORMAL [None]
  - MEMORY IMPAIRMENT [None]
